FAERS Safety Report 24567623 (Version 2)
Quarter: 2024Q4

REPORT INFORMATION
  Report Type: Spontaneous
  Country: US (occurrence: US)
  Receive Date: 20241031
  Receipt Date: 20241127
  Transmission Date: 20250115
  Serious: Yes (Other)
  Sender: TEVA
  Company Number: US-TEVA-VS-3258750

PATIENT
  Age: 1 Year
  Sex: Male

DRUGS (4)
  1. PENICILLAMINE [Suspect]
     Active Substance: PENICILLAMINE
     Indication: Metal poisoning
     Route: 048
  2. DIMERCAPROL [Suspect]
     Active Substance: DIMERCAPROL
     Indication: Metal poisoning
     Route: 051
  3. EDETATE CALCIUM DISODIUM [Suspect]
     Active Substance: EDETATE CALCIUM DISODIUM
     Indication: Metal poisoning
     Route: 051
  4. 2,3-DIMERCAPTOSUCCINIC ACID [Suspect]
     Active Substance: 2,3-DIMERCAPTOSUCCINIC ACID
     Indication: Metal poisoning
     Route: 048

REACTIONS (4)
  - Nausea [Recovering/Resolving]
  - Feeding disorder [Recovering/Resolving]
  - Vomiting [Recovering/Resolving]
  - Selective eating disorder [Recovering/Resolving]
